FAERS Safety Report 8355215-7 (Version None)
Quarter: 2012Q2

REPORT INFORMATION
  Report Type: 
  Country: None (occurrence: None)
  Receive Date: 20120511
  Receipt Date: 20120430
  Transmission Date: 20120825
  Serious: Yes (Hospitalization, Other)
  Sender: FDA-Public Use
  Company Number: US-ELI_LILLY_AND_COMPANY-US201203001151

PATIENT
  Sex: Male

DRUGS (2)
  1. FORTEO [Suspect]
     Dosage: 20 UG, QD
     Route: 058
     Dates: start: 20100301
  2. WARFARIN SODIUM [Concomitant]
     Dosage: UNK, UNKNOWN

REACTIONS (2)
  - PNEUMONIA [None]
  - AORTIC ANEURYSM [None]
